FAERS Safety Report 13676271 (Version 1)
Quarter: 2017Q2

REPORT INFORMATION
  Report Type: Report from Study
  Country: GB (occurrence: GB)
  Receive Date: 20170622
  Receipt Date: 20170622
  Transmission Date: 20170830
  Serious: Yes (Hospitalization)
  Sender: FDA-Public Use
  Company Number: GB-ROCHE-1950494

PATIENT
  Age: 68 Year
  Sex: Male
  Weight: 112 kg

DRUGS (4)
  1. VEMURAFENIB [Suspect]
     Active Substance: VEMURAFENIB
     Indication: METASTATIC MALIGNANT MELANOMA
     Dosage: DATE OF MOST RECENT DOSE OF VEMURAFENIB PRIOR TO FEVER UNKNOWN ORIGIN 39.3 ONSET: 4 TABLETS ON 08/JU
     Route: 048
  2. CLEXANE [Concomitant]
     Active Substance: ENOXAPARIN SODIUM
     Route: 058
     Dates: start: 20170609, end: 20170612
  3. HEPARIN SODIUM. [Concomitant]
     Active Substance: HEPARIN SODIUM
     Indication: PROPHYLAXIS
     Dosage: STOPED ON 20/JUN/2017
     Route: 058
     Dates: start: 20170612
  4. COBIMETINIB [Suspect]
     Active Substance: COBIMETINIB
     Indication: METASTATIC MALIGNANT MELANOMA
     Dosage: DOSE OF MOST RECENT DOSE OF COBIMETINIB ADMINISTERED PRIOR TO FEVER UNKNOWN ORIGIN 39.3 ONSET: 60 MG
     Route: 048

REACTIONS (2)
  - Pyrexia [Recovered/Resolved]
  - Acute kidney injury [Recovering/Resolving]

NARRATIVE: CASE EVENT DATE: 20170609
